FAERS Safety Report 9818871 (Version 1)
Quarter: 2014Q1

REPORT INFORMATION
  Report Type: Spontaneous
  Country: US (occurrence: None)
  Receive Date: 20140114
  Receipt Date: 20140114
  Transmission Date: 20141002
  Serious: Yes (Life-Threatening, Hospitalization, Disabling)
  Sender: FDA-Public Use
  Company Number: None

PATIENT
  Age: 85 Year
  Sex: Female
  Weight: 54.89 kg

DRUGS (6)
  1. ROSUVASTATIN [Suspect]
     Indication: HYPERLIPIDAEMIA
     Route: 048
     Dates: start: 20131226
  2. MEGACE [Concomitant]
  3. CILOSTAZOL [Concomitant]
  4. DILTIAZEM [Concomitant]
  5. PIOGLITAZONE [Concomitant]
  6. AGGRENOX [Concomitant]

REACTIONS (5)
  - Fall [None]
  - Hypophagia [None]
  - Renal failure acute [None]
  - Rhabdomyolysis [None]
  - Haemodialysis [None]
